FAERS Safety Report 9880949 (Version 1)
Quarter: 2014Q1

REPORT INFORMATION
  Report Type: Spontaneous
  Country: US (occurrence: None)
  Receive Date: 20140206
  Receipt Date: 20140206
  Transmission Date: 20141002
  Serious: Yes (Hospitalization)
  Sender: FDA-Public Use
  Company Number: None

PATIENT
  Age: 57 Year
  Sex: Male
  Weight: 80 kg

DRUGS (3)
  1. TAXOL [Suspect]
     Dosage: 103MG/M2 ONCE A WK EVERY OTHER WEEK
     Route: 042
  2. FLUOROURACILE [Suspect]
     Dosage: 1200MG Q OTHER WEEK SUN-F INTRAVENOUS
     Route: 042
  3. HYDREA [Concomitant]

REACTIONS (4)
  - Incision site erythema [None]
  - Wound secretion [None]
  - Purulence [None]
  - Surgical procedure repeated [None]
